FAERS Safety Report 7812685-8 (Version None)
Quarter: 2011Q4

REPORT INFORMATION
  Report Type: 
  Country: None (occurrence: None)
  Receive Date: 20111013
  Receipt Date: 20110930
  Transmission Date: 20120403
  Serious: Yes (Life-Threatening, Hospitalization)
  Sender: FDA-Public Use
  Company Number: AT-ELI_LILLY_AND_COMPANY-AT201110000542

PATIENT
  Age: 52 Year
  Sex: Female

DRUGS (13)
  1. LAMOTRIGINE [Concomitant]
     Dosage: 175 MG, UNK
     Dates: start: 20110602, end: 20110611
  2. ZYPREXA [Suspect]
     Dosage: 7.5 MG, QD
     Dates: start: 20110601, end: 20110706
  3. DULOXETINE HYDROCHLORIDE [Suspect]
     Dosage: 60 MG, QD
     Dates: start: 20110602, end: 20110608
  4. LAMOTRIGINE [Concomitant]
     Dosage: 100 MG, UNK
     Dates: start: 20110624, end: 20110627
  5. ZYPREXA [Suspect]
     Dosage: 5 MG, QD
     Dates: start: 20110707, end: 20110707
  6. ZYPREXA [Suspect]
     Dosage: 2.5 MG, UNK
     Dates: start: 20110708, end: 20110714
  7. LAMOTRIGINE [Concomitant]
     Dosage: 150 MG, UNK
     Dates: start: 20110612, end: 20110616
  8. LAMOTRIGINE [Concomitant]
     Dosage: 75 MG, UNK
     Dates: start: 20110628, end: 20110703
  9. LAMOTRIGINE [Concomitant]
     Dosage: 200 MG, QD
     Dates: start: 20100101, end: 20110601
  10. LAMOTRIGINE [Concomitant]
     Dosage: 125 MG, UNK
     Dates: start: 20110617, end: 20110623
  11. LAMOTRIGINE [Concomitant]
     Dosage: 50 MG, UNK
     Dates: start: 20110704
  12. TRAZODONE HCL [Concomitant]
     Dosage: 300 MG, UNK
     Dates: start: 20100101
  13. DULOXETINE HYDROCHLORIDE [Suspect]
     Dosage: 120 MG, UNK
     Dates: start: 20110609

REACTIONS (3)
  - GAMMA-GLUTAMYLTRANSFERASE INCREASED [None]
  - ALANINE AMINOTRANSFERASE INCREASED [None]
  - ASPARTATE AMINOTRANSFERASE INCREASED [None]
